FAERS Safety Report 16109758 (Version 1)
Quarter: 2019Q1

REPORT INFORMATION
  Report Type: Report from Study
  Country: US (occurrence: US)
  Receive Date: 20190325
  Receipt Date: 20190325
  Transmission Date: 20190418
  Serious: Yes (Other)
  Sender: FDA-Public Use
  Company Number: US-SA-2019SA076574

PATIENT

DRUGS (2)
  1. INSULIN GLARGINE/LIXISENATIDE [Suspect]
     Active Substance: INSULIN GLARGINE\LIXISENATIDE
     Dosage: UNK
  2. SOLOSTAR [Suspect]
     Active Substance: DEVICE
     Dosage: UNK

REACTIONS (5)
  - Weight fluctuation [Unknown]
  - Glycosylated haemoglobin abnormal [Unknown]
  - Renal disorder [Unknown]
  - Neuropathy peripheral [Unknown]
  - Diabetic retinal oedema [Unknown]
